FAERS Safety Report 16799191 (Version 1)
Quarter: 2019Q3

REPORT INFORMATION
  Report Type: Spontaneous
  Country: NL (occurrence: NL)
  Receive Date: 20190912
  Receipt Date: 20190912
  Transmission Date: 20191005
  Serious: Yes (Hospitalization)
  Sender: FDA-Public Use
  Company Number: NL-MYLANLABS-2019M1084227

PATIENT
  Age: 63 Year
  Sex: Male
  Weight: 115 kg

DRUGS (6)
  1. VENLAFAXINE [Suspect]
     Active Substance: VENLAFAXINE HYDROCHLORIDE
     Indication: ANXIETY
     Dosage: 150 MILLIGRAM, QD. 1X DAAGS 2 ST 75
     Route: 048
     Dates: start: 20181115
  2. VENLAFAXINE [Suspect]
     Active Substance: VENLAFAXINE HYDROCHLORIDE
     Indication: DEPRESSION
  3. PANTOPRAZOL                        /01263201/ [Concomitant]
     Active Substance: PANTOPRAZOLE
     Dosage: UNK
  4. ZOLPIDEM [Concomitant]
     Active Substance: ZOLPIDEM TARTRATE
     Dosage: 10 MILLIGRAM, QD, 10 VOOR DE NACHT
  5. QUETIAPINE. [Concomitant]
     Active Substance: QUETIAPINE
     Dosage: 1 DOSAGE FORM, (6X 25 MG) DAARNA 250 MG PER 24 UUR
     Dates: start: 20181001
  6. COLECALCIFEROL [Concomitant]
     Active Substance: CHOLECALCIFEROL
     Dosage: UNK
     Route: 048
     Dates: start: 2018, end: 20190220

REACTIONS (8)
  - Anxiety [Not Recovered/Not Resolved]
  - Insomnia [Not Recovered/Not Resolved]
  - Tinnitus [Unknown]
  - Malaise [Not Recovered/Not Resolved]
  - Hypertension [Unknown]
  - Constipation [Unknown]
  - Nightmare [Unknown]
  - Headache [Unknown]

NARRATIVE: CASE EVENT DATE: 20181120
